FAERS Safety Report 17546380 (Version 1)
Quarter: 2020Q1

REPORT INFORMATION
  Report Type: Spontaneous
  Country: US (occurrence: US)
  Receive Date: 20200316
  Receipt Date: 20200316
  Transmission Date: 20200409
  Serious: Yes (Disabling, Other)
  Sender: FDA-Public Use
  Company Number: US-ALLERGAN-2010487US

PATIENT
  Sex: Female

DRUGS (1)
  1. OZURDEX [Suspect]
     Active Substance: DEXAMETHASONE
     Indication: DIABETIC RETINAL OEDEMA
     Dosage: 0.7 MG, SINGLE
     Route: 031
     Dates: start: 20181212, end: 20181212

REACTIONS (12)
  - Deformity [Unknown]
  - Impaired quality of life [Unknown]
  - Endophthalmitis [Unknown]
  - Injury [Unknown]
  - Pain [Unknown]
  - Disability [Unknown]
  - Tractional retinal detachment [Unknown]
  - Blindness [Unknown]
  - Economic problem [Unknown]
  - Recalled product administered [Unknown]
  - Emotional distress [Unknown]
  - Anxiety [Unknown]
